FAERS Safety Report 25711524 (Version 1)
Quarter: 2025Q3

REPORT INFORMATION
  Report Type: Report from Study
  Country: IN (occurrence: IN)
  Receive Date: 20250821
  Receipt Date: 20250821
  Transmission Date: 20251021
  Serious: Yes (Other)
  Sender: ROCHE
  Company Number: IN-ROCHE-10000362587

PATIENT
  Age: 48 Year
  Sex: Female

DRUGS (14)
  1. CELLCEPT [Suspect]
     Active Substance: MYCOPHENOLATE MOFETIL
     Indication: Renal transplant
     Route: 048
  2. Defcort [Concomitant]
  3. TACROLIMUS [Concomitant]
     Active Substance: TACROLIMUS
  4. TORSEMIDE [Concomitant]
     Active Substance: TORSEMIDE
  5. Jocal c [Concomitant]
  6. CHOLECALCIFEROL [Concomitant]
     Active Substance: CHOLECALCIFEROL
  7. Sodanet [Concomitant]
  8. LNBLOC [Concomitant]
  9. Ultra magnesium [Concomitant]
  10. U ease [Concomitant]
  11. DOLO [Concomitant]
  12. CHYMORAL [Concomitant]
     Active Substance: CHYMOTRYPSIN\TRYPSIN
  13. PAN D [Concomitant]
  14. AUGMENTIN [Concomitant]
     Active Substance: AMOXICILLIN\CLAVULANATE POTASSIUM

REACTIONS (8)
  - Tubulointerstitial nephritis [Recovered/Resolved with Sequelae]
  - Arteriosclerosis [Unknown]
  - Kidney fibrosis [Unknown]
  - Blood creatinine increased [Unknown]
  - Oedema [Unknown]
  - Diarrhoea [Unknown]
  - Renal tubular atrophy [Unknown]
  - Kidney transplant rejection [Unknown]

NARRATIVE: CASE EVENT DATE: 20190801
